FAERS Safety Report 9732171 (Version 2)
Quarter: 2014Q1

REPORT INFORMATION
  Report Type: Report from Study
  Country: BR (occurrence: BR)
  Receive Date: 20131205
  Receipt Date: 20140126
  Transmission Date: 20141002
  Serious: Yes (Other)
  Sender: FDA-Public Use
  Company Number: BR-US-EMD SERONO, INC.-7254046

PATIENT
  Sex: Female

DRUGS (2)
  1. REBIF [Suspect]
     Indication: RELAPSING-REMITTING MULTIPLE SCLEROSIS
     Dates: start: 20101201
  2. CYPROTERONACETAAT/ETHINYLESTRADIOL MERCK [Concomitant]
     Indication: CONTRACEPTION

REACTIONS (2)
  - Labyrinthitis [Recovered/Resolved]
  - Headache [Unknown]
